FAERS Safety Report 8037597-9 (Version None)
Quarter: 2012Q1

REPORT INFORMATION
  Report Type: 
  Country: None (occurrence: None)
  Receive Date: 20120111
  Receipt Date: 20120105
  Transmission Date: 20120608
  Serious: Yes (Other)
  Sender: FDA-Public Use
  Company Number: US-ABBOTT-11P-163-0873799-00

PATIENT
  Sex: Female
  Weight: 69.916 kg

DRUGS (3)
  1. AMBIEN [Concomitant]
     Indication: INSOMNIA
  2. HUMIRA [Suspect]
     Dates: end: 20110221
  3. HUMIRA [Suspect]
     Indication: CROHN'S DISEASE
     Dates: start: 20070625, end: 20080601

REACTIONS (9)
  - PYREXIA [None]
  - MUSCLE SWELLING [None]
  - ADHESION [None]
  - INCISIONAL HERNIA [None]
  - ABDOMINAL PAIN [None]
  - CONSTIPATION [None]
  - BACK PAIN [None]
  - PROCEDURAL SITE REACTION [None]
  - SMALL INTESTINAL OBSTRUCTION [None]
